FAERS Safety Report 8528423-X (Version None)
Quarter: 2012Q3

REPORT INFORMATION
  Report Type: 
  Country: None (occurrence: None)
  Receive Date: 20120722
  Receipt Date: 20120716
  Transmission Date: 20120928
  Serious: No
  Sender: FDA-Public Use
  Company Number: US-009507513-1207USA005291

PATIENT

DRUGS (1)
  1. NASONEX [Suspect]
     Indication: NASAL POLYPS
     Dosage: 4 DF, QD
     Route: 045
     Dates: start: 20100101

REACTIONS (3)
  - FACE INJURY [None]
  - EPISTAXIS [None]
  - PRODUCT QUALITY ISSUE [None]
